FAERS Safety Report 8676592 (Version 2)
Quarter: 2013Q2

REPORT INFORMATION
  Report Type: Spontaneous
  Country: ES (occurrence: ES)
  Receive Date: 20120722
  Receipt Date: 20130422
  Transmission Date: 20140414
  Serious: Yes (Hospitalization, Other)
  Sender: FDA-Public Use
  Company Number: PHHY2012ES061020

PATIENT
  Age: 19 Year
  Sex: Female

DRUGS (8)
  1. RIFAMPICIN [Suspect]
     Indication: TUBERCULOSIS
  2. HYDROXYCHLOROQUINE [Interacting]
     Indication: AUTOIMMUNE DISORDER
  3. METHOTREXATE [Concomitant]
  4. PREDNISONE [Concomitant]
  5. FOLIC ACID [Concomitant]
  6. PYRAZINAMIDE [Concomitant]
  7. ISONIAZID [Concomitant]
  8. ETHAMBUTOL [Concomitant]

REACTIONS (17)
  - Autoimmune disorder [Recovering/Resolving]
  - Lymphadenopathy [Recovering/Resolving]
  - Leukopenia [Recovering/Resolving]
  - Anaemia [Recovering/Resolving]
  - Pleural effusion [Recovering/Resolving]
  - Arthralgia [Unknown]
  - Oedema peripheral [Recovering/Resolving]
  - Condition aggravated [Recovering/Resolving]
  - Toxic skin eruption [Recovering/Resolving]
  - Skin lesion [Recovering/Resolving]
  - Blister [Recovering/Resolving]
  - Nodule [Recovering/Resolving]
  - Pruritus generalised [Recovering/Resolving]
  - Pruritus [Recovering/Resolving]
  - Klebsiella test positive [Recovering/Resolving]
  - Renal failure acute [Recovering/Resolving]
  - Drug interaction [Unknown]
